FAERS Safety Report 6985922-X (Version None)
Quarter: 2010Q3

REPORT INFORMATION
  Report Type: 
  Country: None (occurrence: None)
  Receive Date: 20100915
  Receipt Date: 20100903
  Transmission Date: 20110219
  Serious: Yes (Other)
  Sender: FDA-Public Use
  Company Number: IT-PFIZER INC-2010112102

PATIENT
  Sex: Male

DRUGS (1)
  1. CHAMPIX [Suspect]
     Indication: SMOKING CESSATION THERAPY
     Dosage: UNK
     Route: 048

REACTIONS (8)
  - ANXIETY [None]
  - FEELING COLD [None]
  - FEELING HOT [None]
  - GASTROINTESTINAL DISORDER [None]
  - NAUSEA [None]
  - NERVOUSNESS [None]
  - VERTIGO [None]
  - VOMITING [None]
